FAERS Safety Report 15834929 (Version 3)
Quarter: 2019Q1

REPORT INFORMATION
  Report Type: Report from Study
  Country: EG (occurrence: EG)
  Receive Date: 20190116
  Receipt Date: 20190325
  Transmission Date: 20190417
  Serious: Yes (Hospitalization)
  Sender: FDA-Public Use
  Company Number: EG-ELI_LILLY_AND_COMPANY-EG201901002521

PATIENT
  Sex: Female

DRUGS (7)
  1. DISFLATYL DIMETICONE [Concomitant]
     Indication: GASTROINTESTINAL DISORDER
  2. DRAMENEX [Concomitant]
     Indication: DIZZINESS
  3. DIGESTIN ALUMINIUM HYDROXIDE GEL, DRIED;AMYL [Concomitant]
     Indication: GASTROINTESTINAL DISORDER
  4. DRAMENEX [Concomitant]
     Indication: VOMITING
  5. TERIPARATIDE [Suspect]
     Active Substance: TERIPARATIDE
     Indication: OSTEOPOROSIS
     Dosage: 20 UG, DAILY
     Route: 058
     Dates: start: 201811, end: 20190219
  6. DRAMENEX [Concomitant]
     Indication: GASTROINTESTINAL DISORDER
  7. TERIPARATIDE [Suspect]
     Active Substance: TERIPARATIDE
     Dosage: 20 UG, DAILY
     Route: 058
     Dates: start: 20190301

REACTIONS (9)
  - Inflammation [Unknown]
  - Uterine prolapse [Not Recovered/Not Resolved]
  - Intestinal obstruction [Not Recovered/Not Resolved]
  - Bladder pain [Unknown]
  - Urinary retention [Not Recovered/Not Resolved]
  - Back pain [Not Recovered/Not Resolved]
  - Mobility decreased [Unknown]
  - Medical device site infection [Unknown]
  - Constipation [Not Recovered/Not Resolved]

NARRATIVE: CASE EVENT DATE: 201811
